FAERS Safety Report 13845211 (Version 2)
Quarter: 2017Q3

REPORT INFORMATION
  Report Type: Report from Study
  Country: None (occurrence: US)
  Receive Date: 20170808
  Receipt Date: 20170814
  Transmission Date: 20171127
  Serious: Yes (Hospitalization)
  Sender: FDA-Public Use
  Company Number: US-ABBVIE-17K-163-2063171-00

PATIENT
  Age: 15 Year
  Sex: Female
  Weight: 54.48 kg

DRUGS (3)
  1. HUMIRA [Suspect]
     Active Substance: ADALIMUMAB
     Route: 058
     Dates: start: 20170729
  2. HUMIRA [Suspect]
     Active Substance: ADALIMUMAB
     Indication: CROHN^S DISEASE
     Route: 058
     Dates: start: 201702, end: 201705
  3. HUMIRA [Suspect]
     Active Substance: ADALIMUMAB
     Route: 058
     Dates: start: 201705, end: 201705

REACTIONS (5)
  - Intestinal obstruction [Recovered/Resolved]
  - Incision site cellulitis [Recovered/Resolved]
  - Volvulus [Recovered/Resolved]
  - Enteritis [Unknown]
  - Ileal stenosis [Unknown]

NARRATIVE: CASE EVENT DATE: 2017
